FAERS Safety Report 23653151 (Version 1)
Quarter: 2024Q1

REPORT INFORMATION
  Report Type: Spontaneous
  Country: US (occurrence: US)
  Receive Date: 20240320
  Receipt Date: 20240320
  Transmission Date: 20240410
  Serious: No
  Sender: FDA-Public Use
  Company Number: US-E2BLSMVVAL-SPO/USA/24/0004479

PATIENT
  Age: 13 Year
  Sex: Male
  Weight: 26.31 kg

DRUGS (1)
  1. SAPROPTERIN DIHYDROCHLORIDE [Suspect]
     Active Substance: SAPROPTERIN DIHYDROCHLORIDE
     Indication: Phenylketonuria
     Dosage: BOTTLE OF 30
     Route: 048

REACTIONS (2)
  - Sneezing [Unknown]
  - Nasal congestion [Unknown]
